FAERS Safety Report 8513627-2 (Version None)
Quarter: 2012Q3

REPORT INFORMATION
  Report Type: 
  Country: None (occurrence: None)
  Receive Date: 20120717
  Receipt Date: 20120712
  Transmission Date: 20120928
  Serious: No
  Sender: FDA-Public Use
  Company Number: US-PFIZER INC-2012157044

PATIENT
  Sex: Male
  Weight: 112 kg

DRUGS (5)
  1. DILANTIN [Suspect]
     Indication: CONVULSION
     Dosage: 100 MG, 1X/DAY
     Route: 048
  2. CIALIS [Concomitant]
     Indication: ERECTILE DYSFUNCTION
     Dosage: 100 MG, UNK
  3. NEURONTIN [Suspect]
     Dosage: 800 MG, 3X/DAY
     Route: 048
  4. RELPAX [Suspect]
     Indication: HEADACHE
     Dosage: 40 MG, 4X/DAY
     Route: 048
  5. CELEBREX [Suspect]
     Indication: HEADACHE
     Dosage: 200 MG, 4X/DAY
     Route: 048

REACTIONS (1)
  - BLOOD IRON DECREASED [None]
